FAERS Safety Report 9147397 (Version 3)
Quarter: 2013Q2

REPORT INFORMATION
  Report Type: Spontaneous
  Country: JP (occurrence: JP)
  Receive Date: 20130307
  Receipt Date: 20130408
  Transmission Date: 20140414
  Serious: Yes (Hospitalization)
  Sender: FDA-Public Use
  Company Number: JP-GLAXOSMITHKLINE-B0871500A

PATIENT
  Age: 44 Year
  Sex: Male
  Weight: 64 kg

DRUGS (9)
  1. XYZAL [Suspect]
     Indication: SEASONAL ALLERGY
     Dosage: 5MG PER DAY
     Route: 048
     Dates: start: 20130201, end: 20130214
  2. CHINESE MEDICINE [Suspect]
     Indication: DERMATITIS
     Dosage: 2.5G THREE TIMES PER DAY
     Route: 048
     Dates: start: 201212, end: 20130218
  3. GASTER D [Suspect]
     Indication: ABDOMINAL DISCOMFORT
     Dosage: 10MG TWICE PER DAY
     Route: 048
     Dates: start: 20130215, end: 20130218
  4. ADOAIR [Concomitant]
     Indication: ASTHMA
     Dosage: 250MCG PER DAY
     Route: 055
  5. MUCOSTA [Concomitant]
     Indication: ABDOMINAL DISCOMFORT
     Dosage: 100MG THREE TIMES PER DAY
     Route: 048
     Dates: start: 20130215, end: 20130218
  6. TALION [Concomitant]
     Indication: DERMATITIS
     Dosage: 10MG TWICE PER DAY
     Route: 048
     Dates: end: 20130218
  7. MOHRUS TAPE [Concomitant]
     Dosage: 1IUAX PER DAY
     Route: 061
  8. PATANOL [Concomitant]
     Route: 031
  9. NASONEX [Concomitant]
     Route: 045

REACTIONS (5)
  - Periportal sinus dilatation [Unknown]
  - Liver disorder [Recovering/Resolving]
  - Biliary tract disorder [Unknown]
  - Jaundice [Unknown]
  - Malaise [Unknown]
